FAERS Safety Report 5669572-3 (Version None)
Quarter: 2008Q1

REPORT INFORMATION
  Report Type: 
  Country: None (occurrence: None)
  Receive Date: 20080312
  Receipt Date: 20080312
  Transmission Date: 20080703
  Serious: No
  Sender: FDA-Public Use
  Company Number: None

PATIENT
  Sex: Female
  Weight: 22.4 kg

DRUGS (3)
  1. VANCOMYCIN [Suspect]
     Indication: PNEUMONIA
     Dosage: 320MG Q 8 HOURS IV
     Route: 042
     Dates: start: 20080205, end: 20080207
  2. CLINDAMYCIN HCL [Concomitant]
  3. CEFTRIAXONE [Concomitant]

REACTIONS (1)
  - RASH GENERALISED [None]
